FAERS Safety Report 4932525-4 (Version None)
Quarter: 2006Q1

REPORT INFORMATION
  Report Type: 
  Country: None (occurrence: None)
  Receive Date: 20060303
  Receipt Date: 20060221
  Transmission Date: 20060701
  Serious: Yes (Hospitalization, Other)
  Sender: FDA-Public Use
  Company Number: US-MERCK-0602USA05264

PATIENT
  Age: 64 Year
  Sex: Male
  Weight: 141 kg

DRUGS (1)
  1. VIOXX [Suspect]
     Indication: ARTHRITIS
     Route: 048
     Dates: start: 20010529, end: 20020601

REACTIONS (6)
  - ARTERIAL SPASM [None]
  - COLONIC POLYP [None]
  - DIZZINESS [None]
  - GASTROINTESTINAL DISORDER [None]
  - MYOCARDIAL INFARCTION [None]
  - PAIN [None]
